FAERS Safety Report 16196988 (Version 1)
Quarter: 2019Q2

REPORT INFORMATION
  Report Type: Spontaneous
  Country: US (occurrence: US)
  Receive Date: 20190415
  Receipt Date: 20190415
  Transmission Date: 20190711
  Serious: No
  Sender: FDA-Public Use
  Company Number: US-PFIZER INC-2019154718

PATIENT
  Age: 58 Year
  Sex: Female
  Weight: 55.37 kg

DRUGS (12)
  1. XELJANZ [Suspect]
     Active Substance: TOFACITINIB CITRATE
     Indication: RHEUMATOID ARTHRITIS
     Dosage: 5 MG, 2X/DAY
     Route: 048
     Dates: start: 2016
  2. NORVASC [Concomitant]
     Active Substance: AMLODIPINE BESYLATE
     Dosage: 5 MG, UNK
  3. MELOXICAM. [Concomitant]
     Active Substance: MELOXICAM
     Dosage: 15 MG, UNK
  4. EVOXAC [Concomitant]
     Active Substance: CEVIMELINE HYDROCHLORIDE
     Dosage: 30 MG, UNK
  5. TOVIAZ [Concomitant]
     Active Substance: FESOTERODINE FUMARATE
     Dosage: 4 MG, UNK
  6. ALLOPURINOL. [Concomitant]
     Active Substance: ALLOPURINOL
     Dosage: 100 MG, UNK
  7. PREDNISONE. [Concomitant]
     Active Substance: PREDNISONE
     Dosage: 10 MG, UNK
  8. BYSTOLIC [Concomitant]
     Active Substance: NEBIVOLOL HYDROCHLORIDE
     Dosage: 10 MG, UNK
  9. PRILOSEC [Concomitant]
     Active Substance: OMEPRAZOLE MAGNESIUM
     Dosage: 20 MG, UNK
  10. LIPITOR [Concomitant]
     Active Substance: ATORVASTATIN CALCIUM
     Dosage: 20 MG, UNK
  11. PLAQUENIL [Concomitant]
     Active Substance: HYDROXYCHLOROQUINE SULFATE
     Dosage: 200 MG, UNK
  12. PRISTIQ EXTENDED-RELEASE [Concomitant]
     Active Substance: DESVENLAFAXINE SUCCINATE
     Dosage: 50 MG, UNK

REACTIONS (1)
  - Bacterial infection [Unknown]
